FAERS Safety Report 14757895 (Version 1)
Quarter: 2018Q2

REPORT INFORMATION
  Report Type: Spontaneous
  Country: US (occurrence: US)
  Receive Date: 20180413
  Receipt Date: 20180413
  Transmission Date: 20180711
  Serious: Yes (Other)
  Sender: FDA-Public Use
  Company Number: US-ELI_LILLY_AND_COMPANY-US201804002728

PATIENT

DRUGS (1)
  1. ALIMTA [Suspect]
     Active Substance: PEMETREXED DISODIUM
     Indication: ENDOMETRIAL CANCER
     Dosage: UNK UNK, UNKNOWN
     Route: 065

REACTIONS (3)
  - Nephropathy toxic [Unknown]
  - Toxicity to various agents [Unknown]
  - Off label use [Unknown]
